FAERS Safety Report 5361121-2 (Version None)
Quarter: 2007Q2

REPORT INFORMATION
  Report Type: 
  Country: None (occurrence: None)
  Receive Date: 20070618
  Receipt Date: 20070611
  Transmission Date: 20071010
  Serious: Yes (Other)
  Sender: FDA-Public Use
  Company Number: GB-ALLERGAN-0706133US

PATIENT
  Sex: Female

DRUGS (8)
  1. PREDNISOLONE ACETATE [Suspect]
     Indication: POSTOPERATIVE CARE
     Dosage: UNK, QID
     Route: 047
  2. CHLORAMPHENICOL UNSPEC [Suspect]
     Indication: POSTOPERATIVE CARE
     Dosage: UNK, QID
     Route: 047
  3. LIDOCAINE [Suspect]
     Indication: LOCAL ANAESTHESIA
     Dosage: UNK, SINGLE
  4. BUPIVACAINE [Suspect]
     Indication: LOCAL ANAESTHESIA
     Dosage: UNK, SINGLE
  5. HYALURONIDASE [Suspect]
     Indication: LOCAL ANAESTHESIA
     Dosage: 500 IU, SINGLE
  6. POVIDONE IODINE [Suspect]
     Indication: INFECTION PROPHYLAXIS
     Dosage: UNK, SINGLE
  7. CEFUROXIME [Suspect]
     Indication: POSTOPERATIVE CARE
     Dosage: UNK, SINGLE
  8. PROXYMETACAINE [Concomitant]
     Indication: LOCAL ANAESTHESIA
     Dosage: UNK, SINGLE
     Route: 047

REACTIONS (3)
  - CONJUNCTIVAL OEDEMA [None]
  - INTRAOCULAR PRESSURE INCREASED [None]
  - PAROPHTHALMIA [None]
